FAERS Safety Report 6192158-1 (Version None)
Quarter: 2009Q2

REPORT INFORMATION
  Report Type: 
  Country: None (occurrence: None)
  Receive Date: 20090515
  Receipt Date: 20090507
  Transmission Date: 20091009
  Serious: Yes (Other)
  Sender: FDA-Public Use
  Company Number: PHHY2009BR17534

PATIENT
  Sex: Female

DRUGS (7)
  1. DIOVAN [Suspect]
     Indication: BLOOD PRESSURE
     Dosage: 80 MG, QD
     Dates: start: 20080101
  2. DIOVAN [Suspect]
     Dosage: 80 MG, BID
  3. DIOVAN [Suspect]
     Dosage: 2 TABLETS (80 MG) IN THE MORNING
  4. DIOVAN [Suspect]
     Dosage: 160 MG
  5. ALDACTONE [Concomitant]
     Indication: BLOOD PRESSURE MANAGEMENT
     Dosage: 1 DF, ONCE/SINGLE
  6. DAFLON (DIOSMIN) [Concomitant]
     Indication: ANGIOPATHY
     Dosage: 1 DF, QD
  7. LORAX                                   /BRA/ [Concomitant]
     Indication: RELAXATION THERAPY
     Dosage: 2 DF, QD

REACTIONS (7)
  - CAPILLARY FRAGILITY [None]
  - DRUG INEFFECTIVE [None]
  - EYE HAEMORRHAGE [None]
  - EYE OPERATION [None]
  - MACULOPATHY [None]
  - RETINAL ARTERY OCCLUSION [None]
  - VASCULAR RUPTURE [None]
